FAERS Safety Report 7480252-4 (Version None)
Quarter: 2011Q2

REPORT INFORMATION
  Report Type: 
  Country: None (occurrence: None)
  Receive Date: 20110516
  Receipt Date: 20110506
  Transmission Date: 20111010
  Serious: No
  Sender: FDA-Public Use
  Company Number: US-BIOGENIDEC-2011BI017549

PATIENT
  Age: 33 Year
  Sex: Female

DRUGS (1)
  1. TYSABRI [Suspect]
     Indication: MULTIPLE SCLEROSIS
     Route: 042
     Dates: start: 20110401

REACTIONS (7)
  - PAIN [None]
  - ARTHRALGIA [None]
  - PERONEAL NERVE PALSY [None]
  - NAUSEA [None]
  - BURNING SENSATION [None]
  - HYPOAESTHESIA [None]
  - HEMIPARESIS [None]
